FAERS Safety Report 23159054 (Version 1)
Quarter: 2023Q4

REPORT INFORMATION
  Report Type: Spontaneous
  Country: US (occurrence: None)
  Receive Date: 20231107
  Receipt Date: 20231107
  Transmission Date: 20240110
  Serious: Yes (Hospitalization)
  Sender: FDA-Public Use
  Company Number: None

PATIENT
  Age: 89 Year
  Sex: Female

DRUGS (1)
  1. LENALIDOMIDE [Suspect]
     Active Substance: LENALIDOMIDE
     Indication: Myelodysplastic syndrome
     Dosage: 2.5MG QD ORAL
     Route: 048
     Dates: start: 20230710

REACTIONS (2)
  - Cerebrovascular accident [None]
  - Therapy interrupted [None]

NARRATIVE: CASE EVENT DATE: 20231104
